FAERS Safety Report 5095086-8 (Version None)
Quarter: 2006Q3

REPORT INFORMATION
  Report Type: 
  Country: None (occurrence: None)
  Receive Date: 20060901
  Receipt Date: 20060823
  Transmission Date: 20061208
  Serious: Yes (Other)
  Sender: FDA-Public Use
  Company Number: PHHO2006BR14184

PATIENT
  Age: 28 Year
  Sex: Female

DRUGS (1)
  1. ZELMAC / HTF 919A [Suspect]
     Indication: CONSTIPATION
     Dosage: 1 TABLET/DAY (6MG 30)
     Route: 048
     Dates: start: 20060819

REACTIONS (6)
  - DRUG INEFFECTIVE [None]
  - DYSPHAGIA [None]
  - HYPOAESTHESIA [None]
  - PHARYNGEAL OEDEMA [None]
  - PRURITUS [None]
  - SWELLING [None]
